FAERS Safety Report 23640103 (Version 1)
Quarter: 2024Q1

REPORT INFORMATION
  Report Type: Spontaneous
  Country: GB (occurrence: GB)
  Receive Date: 20240317
  Receipt Date: 20240317
  Transmission Date: 20240410
  Serious: Yes (Disabling)
  Sender: FDA-Public Use
  Company Number: GB-MHRA-MED-202403041338112570-PMKQZ

PATIENT
  Age: 70 Year
  Sex: Male
  Weight: 83 kg

DRUGS (1)
  1. AMLODIPINE [Suspect]
     Active Substance: AMLODIPINE BESYLATE
     Indication: Hypertension
     Dosage: 500 MILLIGRAM, ONCE A DAY
     Route: 065

REACTIONS (1)
  - Bone swelling [Not Recovered/Not Resolved]

NARRATIVE: CASE EVENT DATE: 20230401
